FAERS Safety Report 13028818 (Version 2)
Quarter: 2017Q2

REPORT INFORMATION
  Report Type: Report from Study
  Country: HR (occurrence: HR)
  Receive Date: 20161214
  Receipt Date: 20170407
  Transmission Date: 20170830
  Serious: Yes (Hospitalization)
  Sender: FDA-Public Use
  Company Number: HR-ASTRAZENECA-2016SF29960

PATIENT
  Age: 61 Year
  Sex: Male
  Weight: 74 kg

DRUGS (4)
  1. TAGRISSO [Suspect]
     Active Substance: OSIMERTINIB
     Indication: NON-SMALL CELL LUNG CANCER
     Route: 048
     Dates: start: 20161124, end: 20161202
  2. TAGRISSO [Suspect]
     Active Substance: OSIMERTINIB
     Indication: NON-SMALL CELL LUNG CANCER
     Route: 048
     Dates: start: 20170103
  3. ISOPTEN [Concomitant]
  4. TAGRISSO [Suspect]
     Active Substance: OSIMERTINIB
     Indication: NON-SMALL CELL LUNG CANCER
     Route: 048
     Dates: start: 20160822, end: 20161102

REACTIONS (2)
  - Drug-induced liver injury [Recovered/Resolved]
  - Supraventricular tachycardia [Unknown]

NARRATIVE: CASE EVENT DATE: 20161102
